FAERS Safety Report 5154799-X (Version None)
Quarter: 2006Q4

REPORT INFORMATION
  Report Type: 
  Country: None (occurrence: None)
  Receive Date: 20061115
  Receipt Date: 20061115
  Transmission Date: 20070319
  Serious: Yes (Other)
  Sender: FDA-Public Use
  Company Number: None

PATIENT
  Age: 63 Year
  Sex: Male
  Weight: 97.5234 kg

DRUGS (1)
  1. PAIN RELIEVER ACETAMINOPHEN EXTRA STRENGTH EQUATE/PERRIGO ALLEGAN, MI [Suspect]
     Indication: HEADACHE
     Dosage: 500 MG 2 EVERY 6-8 HOURS PO
     Route: 048
     Dates: start: 20050601, end: 20061112

REACTIONS (3)
  - ABDOMINAL PAIN UPPER [None]
  - PHARMACEUTICAL PRODUCT COMPLAINT [None]
  - POOR QUALITY DRUG ADMINISTERED [None]
